FAERS Safety Report 8953227 (Version 1)
Quarter: 2012Q4

REPORT INFORMATION
  Report Type: 
  Country: US (occurrence: US)
  Receive Date: 20121206
  Receipt Date: 20121206
  Transmission Date: 20130627
  Serious: No
  Sender: FDA-Public Use
  Company Number: US-009507513-1212USA000210

PATIENT
  Sex: Male

DRUGS (5)
  1. ISENTRESS [Suspect]
     Indication: HIV INFECTION
     Dosage: 400 mg, bid
     Route: 048
     Dates: start: 20121114
  2. NORVIR [Concomitant]
  3. PREZISTA [Concomitant]
  4. VIREAD [Concomitant]
  5. ANDROGEL [Concomitant]
     Route: 061

REACTIONS (4)
  - Frequent bowel movements [Not Recovered/Not Resolved]
  - Anal fistula [Not Recovered/Not Resolved]
  - Malabsorption [Not Recovered/Not Resolved]
  - Medication residue [Unknown]
